FAERS Safety Report 6170232-3 (Version None)
Quarter: 2009Q2

REPORT INFORMATION
  Report Type: 
  Country: None (occurrence: None)
  Receive Date: 20090428
  Receipt Date: 20090422
  Transmission Date: 20091009
  Serious: Yes (Other)
  Sender: FDA-Public Use
  Company Number: PHHY2009JP15386

PATIENT
  Age: 17 Year
  Sex: Male

DRUGS (6)
  1. VOLTAREN [Suspect]
     Indication: ARTHRITIS
  2. PREDONINE [Concomitant]
  3. RHEUMATREX [Concomitant]
  4. SALAZOPYRIN [Concomitant]
  5. REMICADE [Concomitant]
  6. GASTER [Concomitant]

REACTIONS (1)
  - RENAL DISORDER [None]
